FAERS Safety Report 8800138 (Version 1)
Quarter: 2012Q4

REPORT INFORMATION
  Report Type: 
  Country: US (occurrence: US)
  Receive Date: 20120921
  Receipt Date: 20120921
  Transmission Date: 20130627
  Serious: Yes (Death, Other)
  Sender: FDA-Public Use
  Company Number: US-ROCHE-1126115

PATIENT
  Sex: Female

DRUGS (2)
  1. AVASTIN [Suspect]
     Indication: LUNG NEOPLASM MALIGNANT
     Dosage: 400 mg or 800 mg
     Route: 065
  2. AVASTIN [Suspect]
     Indication: METASTASES TO LIVER

REACTIONS (3)
  - Death [Fatal]
  - Metastases to kidney [Unknown]
  - Malignant pleural effusion [Unknown]
